FAERS Safety Report 15465459 (Version 1)
Quarter: 2018Q4

REPORT INFORMATION
  Report Type: Spontaneous
  Country: DE (occurrence: DE)
  Receive Date: 20181004
  Receipt Date: 20181004
  Transmission Date: 20190204
  Serious: Yes (Other)
  Sender: FDA-Public Use
  Company Number: DE-ALEXION PHARMACEUTICALS INC.-A201812718

PATIENT
  Age: 13 Year

DRUGS (2)
  1. SOLIRIS [Suspect]
     Active Substance: ECULIZUMAB
     Indication: OFF LABEL USE
  2. SOLIRIS [Suspect]
     Active Substance: ECULIZUMAB
     Indication: NEPHROTIC SYNDROME
     Route: 065

REACTIONS (4)
  - Nephritic syndrome [Recovered/Resolved]
  - Complement factor abnormal [Recovered/Resolved]
  - Off label use [Recovered/Resolved]
  - Proteinuria [Recovered/Resolved]
